FAERS Safety Report 6284826-8 (Version None)
Quarter: 2009Q3

REPORT INFORMATION
  Report Type: 
  Country: None (occurrence: None)
  Receive Date: 20090727
  Receipt Date: 20090531
  Transmission Date: 20100115
  Serious: Yes (Other)
  Sender: FDA-Public Use
  Company Number: US-ALEXION-A200900449

PATIENT

DRUGS (1)
  1. SOLIRIS [Suspect]

REACTIONS (1)
  - MENINGITIS [None]
